FAERS Safety Report 4827742-8 (Version None)
Quarter: 2005Q4

REPORT INFORMATION
  Report Type: 
  Country: None (occurrence: None)
  Receive Date: 20051114
  Receipt Date: 20051102
  Transmission Date: 20060501
  Serious: Yes (Hospitalization, Other)
  Sender: FDA-Public Use
  Company Number: PHEH2005US12152

PATIENT
  Age: 55 Year
  Sex: Female

DRUGS (2)
  1. ZELNORM [Suspect]
     Indication: ABDOMINAL PAIN UPPER
     Dosage: UNK, BID
     Dates: start: 20051010
  2. MORPHINE [Suspect]

REACTIONS (4)
  - CONFUSIONAL STATE [None]
  - FEELING ABNORMAL [None]
  - HEPATOMEGALY [None]
  - HEPATOTOXICITY [None]
